FAERS Safety Report 5081706-0 (Version None)
Quarter: 2006Q3

REPORT INFORMATION
  Report Type: 
  Country: None (occurrence: None)
  Receive Date: 20060816
  Receipt Date: 20060531
  Transmission Date: 20061208
  Serious: Yes (Hospitalization)
  Sender: FDA-Public Use
  Company Number: 2006AP02523

PATIENT
  Age: 71 Year
  Sex: Female

DRUGS (5)
  1. ARIMIDEX [Suspect]
     Indication: BREAST CANCER
     Route: 048
     Dates: start: 20051128, end: 20060126
  2. ARIMIDEX [Suspect]
     Route: 048
  3. ARIMIDEX [Suspect]
     Route: 048
     Dates: start: 20060701
  4. UFT [Suspect]
     Indication: BREAST CANCER
     Route: 048
     Dates: start: 20051128, end: 20060126
  5. UFT [Suspect]
     Route: 048

REACTIONS (1)
  - HEPATIC FUNCTION ABNORMAL [None]
